FAERS Safety Report 24319374 (Version 1)
Quarter: 2024Q3

REPORT INFORMATION
  Report Type: Spontaneous
  Country: US (occurrence: US)
  Receive Date: 20240914
  Receipt Date: 20240914
  Transmission Date: 20241017
  Serious: No
  Sender: ABBVIE
  Company Number: US-ABBVIE-5923276

PATIENT
  Age: 59 Year
  Sex: Female

DRUGS (1)
  1. BOTOX [Suspect]
     Active Substance: ONABOTULINUMTOXINA
     Indication: Migraine
     Dosage: TIME INTERVAL: AS NECESSARY: FREQUENCY: EVERY 12 WEEK
     Route: 065
     Dates: start: 202312

REACTIONS (2)
  - Multiple allergies [Unknown]
  - Injection site cyst [Not Recovered/Not Resolved]

NARRATIVE: CASE EVENT DATE: 20231201
